FAERS Safety Report 4744546-5 (Version None)
Quarter: 2005Q3

REPORT INFORMATION
  Report Type: 
  Country: None (occurrence: None)
  Receive Date: 20050812
  Receipt Date: 20050805
  Transmission Date: 20060218
  Serious: Yes (Other)
  Sender: FDA-Public Use
  Company Number: JP-ABBOTT-05P-087-0307772-00

PATIENT
  Age: 76 Year
  Sex: Female

DRUGS (7)
  1. CLARITHROMYCIN [Suspect]
     Indication: PERIODONTAL DISEASE
     Route: 048
     Dates: start: 20050630, end: 20050630
  2. MEFENAMIC ACID [Suspect]
     Indication: PERIODONTAL DISEASE
     Route: 048
     Dates: start: 20050630, end: 20050630
  3. DILTIAZEM HYDROCHLORIDE [Concomitant]
     Indication: DRUG USE FOR UNKNOWN INDICATION
     Route: 048
  4. BENZYLHYDROCHLORTHIAZIDE [Concomitant]
     Indication: DRUG USE FOR UNKNOWN INDICATION
     Route: 048
  5. CALCITRIOL [Concomitant]
     Indication: DRUG USE FOR UNKNOWN INDICATION
     Route: 048
  6. KETOPROFEN [Concomitant]
     Indication: DRUG USE FOR UNKNOWN INDICATION
     Route: 062
  7. FELBINAC [Concomitant]
     Indication: DRUG USE FOR UNKNOWN INDICATION
     Route: 062

REACTIONS (3)
  - LOSS OF CONSCIOUSNESS [None]
  - PRURITUS [None]
  - SHOCK [None]
